FAERS Safety Report 6355173-0 (Version None)
Quarter: 2009Q3

REPORT INFORMATION
  Report Type: 
  Country: None (occurrence: None)
  Receive Date: 20090909
  Receipt Date: 20090827
  Transmission Date: 20100115
  Serious: Yes (Other)
  Sender: FDA-Public Use
  Company Number: PAR_03157_2009

PATIENT
  Age: 35 Year
  Sex: Male

DRUGS (1)
  1. CLOMIPHENE CITRATE [Suspect]
     Indication: INFERTILITY MALE
     Dosage: (50 MG)

REACTIONS (1)
  - RETINAL VEIN OCCLUSION [None]
